FAERS Safety Report 8989166 (Version 2)
Quarter: 2013Q2

REPORT INFORMATION
  Report Type: Spontaneous
  Country: US (occurrence: None)
  Receive Date: 20121219
  Receipt Date: 20130530
  Transmission Date: 20140414
  Serious: Yes (Hospitalization)
  Sender: FDA-Public Use
  Company Number: ACO_33423_2012

PATIENT
  Age: 40 Year
  Sex: Female

DRUGS (2)
  1. AMPYRA [Suspect]
     Indication: MULTIPLE SCLEROSIS
     Dates: start: 20110707
  2. TYSABRI (NATALIZUMAB) [Concomitant]

REACTIONS (1)
  - Acute myocardial infarction [None]
